FAERS Safety Report 12852608 (Version 1)
Quarter: 2016Q4

REPORT INFORMATION
  Report Type: Spontaneous
  Country: US (occurrence: US)
  Receive Date: 20161015
  Receipt Date: 20161015
  Transmission Date: 20170207
  Serious: Yes (Other)
  Sender: FDA-Public Use
  Company Number: None

PATIENT
  Age: 75 Year
  Sex: Female
  Weight: 81 kg

DRUGS (8)
  1. VITAMIN A [Concomitant]
     Active Substance: VITAMIN A
  2. RANITIDINE. [Concomitant]
     Active Substance: RANITIDINE
  3. TURMERIC [Concomitant]
     Active Substance: TURMERIC
  4. LISINOPRIL. [Concomitant]
     Active Substance: LISINOPRIL
  5. NIFEDIPINE. [Suspect]
     Active Substance: NIFEDIPINE
     Indication: ATRIAL FIBRILLATION
     Dosage: ?          OTHER STRENGTH:TB24;QUANTITY:30 TABLET(S);?
     Route: 048
     Dates: start: 20161014, end: 20161014
  6. ATORVASTATIN [Concomitant]
     Active Substance: ATORVASTATIN
  7. HZT [Concomitant]
  8. VITAMIN D3 [Concomitant]
     Active Substance: CHOLECALCIFEROL

REACTIONS (8)
  - Asthenia [None]
  - Dyspepsia [None]
  - Dizziness [None]
  - Heart rate increased [None]
  - Feeling abnormal [None]
  - Visual impairment [None]
  - Gastric disorder [None]
  - Pain [None]

NARRATIVE: CASE EVENT DATE: 20161015
